FAERS Safety Report 11809668 (Version 1)
Quarter: 2015Q4

REPORT INFORMATION
  Report Type: Spontaneous
  Country: GR (occurrence: GR)
  Receive Date: 20151208
  Receipt Date: 20151208
  Transmission Date: 20160305
  Serious: Yes (Life-Threatening, Hospitalization)
  Sender: FDA-Public Use
  Company Number: PHHY2015GR157385

PATIENT
  Age: 33 Year
  Sex: Male

DRUGS (8)
  1. MIRTAZAPINE. [Interacting]
     Active Substance: MIRTAZAPINE
     Dosage: 45 MG, QD
     Route: 065
  2. RISPERIDONE. [Interacting]
     Active Substance: RISPERIDONE
     Dosage: 4 MG, QD, EAISED WITHIN 2 WEEKS
     Route: 065
  3. CLOMIPRAMINE [Interacting]
     Active Substance: CLOMIPRAMINE
     Indication: SUICIDAL IDEATION
  4. RISPERIDONE. [Suspect]
     Active Substance: RISPERIDONE
     Indication: MAJOR DEPRESSION
     Dosage: 2 MG, PRN, NOT MORE THAN 2 MG PER DAY, GIVEN OCCASIONALLY
     Route: 065
  5. CLOMIPRAMINE [Interacting]
     Active Substance: CLOMIPRAMINE
     Indication: MAJOR DEPRESSION
     Dosage: 10 MG, BID
     Route: 065
  6. MIRTAZAPINE. [Interacting]
     Active Substance: MIRTAZAPINE
     Indication: MAJOR DEPRESSION
     Dosage: 30 MG, QD
     Route: 065
  7. VENLAFAXINE [Interacting]
     Active Substance: VENLAFAXINE HYDROCHLORIDE
     Indication: MAJOR DEPRESSION
     Dosage: 75 MG, QD
     Route: 065
  8. ALPRAZOLAM. [Interacting]
     Active Substance: ALPRAZOLAM
     Indication: MAJOR DEPRESSION
     Dosage: 0.5 MG, TID
     Route: 065

REACTIONS (22)
  - Hyperreflexia [Recovering/Resolving]
  - Anxiety [Recovering/Resolving]
  - Pyrexia [Recovering/Resolving]
  - Drug interaction [Unknown]
  - Gastrointestinal disorder [Recovering/Resolving]
  - Clonus [Recovering/Resolving]
  - Insomnia [Recovering/Resolving]
  - Psychomotor hyperactivity [Recovering/Resolving]
  - Cogwheel rigidity [Recovering/Resolving]
  - Salivary hypersecretion [Recovering/Resolving]
  - Dysphagia [Recovering/Resolving]
  - Serotonin syndrome [Recovering/Resolving]
  - Tachycardia [Recovering/Resolving]
  - Muscle rigidity [Recovering/Resolving]
  - Akathisia [Recovering/Resolving]
  - Restlessness [Recovering/Resolving]
  - Depressed mood [Recovering/Resolving]
  - Hyperhidrosis [Recovering/Resolving]
  - Pallor [Recovering/Resolving]
  - Tremor [Recovering/Resolving]
  - Slow response to stimuli [Recovering/Resolving]
  - Bradykinesia [Recovering/Resolving]
